FAERS Safety Report 13262304 (Version 3)
Quarter: 2018Q1

REPORT INFORMATION
  Report Type: Report from Study
  Country: US (occurrence: US)
  Receive Date: 20170222
  Receipt Date: 20180129
  Transmission Date: 20180508
  Serious: No
  Sender: FDA-Public Use
  Company Number: US-AMGEN-USASL2017025178

PATIENT
  Sex: Female

DRUGS (2)
  1. ENBREL [Suspect]
     Active Substance: ETANERCEPT
     Indication: RHEUMATOID ARTHRITIS
     Dosage: 50 MG, QWK
     Route: 065
  2. ENBREL [Suspect]
     Active Substance: ETANERCEPT
     Dosage: 50 MG, QWK
     Route: 065

REACTIONS (15)
  - Weight decreased [Unknown]
  - Incorrect dose administered [Unknown]
  - Injection site pain [Unknown]
  - Mobility decreased [Unknown]
  - Therapeutic response unexpected [Unknown]
  - Arthralgia [Unknown]
  - Hypersensitivity [Unknown]
  - Balance disorder [Unknown]
  - Arthritis [Unknown]
  - Rheumatoid nodule [Unknown]
  - Sleep disorder [Unknown]
  - Fatigue [Unknown]
  - Swelling [Unknown]
  - Injection site rash [Unknown]
  - Arthropathy [Unknown]
